FAERS Safety Report 8894980 (Version 1)
Quarter: 2012Q4

REPORT INFORMATION
  Report Type: 
  Country: GB (occurrence: GB)
  Receive Date: 20121108
  Receipt Date: 20121108
  Transmission Date: 20130627
  Serious: Yes (Other)
  Sender: FDA-Public Use
  Company Number: PHFR2012GB005844

PATIENT
  Sex: Male

DRUGS (1)
  1. CLOZARIL [Suspect]
     Indication: PSYCHOTIC DISORDER

REACTIONS (3)
  - Psychotic disorder [Unknown]
  - White blood cell count decreased [Unknown]
  - Neutrophil count decreased [Unknown]
